FAERS Safety Report 9138053 (Version 2)
Quarter: 2013Q4

REPORT INFORMATION
  Report Type: Spontaneous
  Country: GB (occurrence: GB)
  Receive Date: 20130304
  Receipt Date: 20131011
  Transmission Date: 20140711
  Serious: Yes (Other)
  Sender: FDA-Public Use
  Company Number: GB-WATSON-2013-03117

PATIENT
  Age: 80 Year
  Sex: Female

DRUGS (1)
  1. ATENOLOL (UNKNOWN) [Suspect]
     Indication: TREMOR
     Dosage: UNK
     Route: 065

REACTIONS (6)
  - Urinary bladder haemorrhage [Recovered/Resolved]
  - Cystitis noninfective [Recovered/Resolved]
  - Malaise [Recovered/Resolved]
  - Cough [Recovered/Resolved]
  - Product substitution issue [Recovered/Resolved]
  - Feeling abnormal [Recovered/Resolved]
